FAERS Safety Report 21161037 (Version 2)
Quarter: 2022Q3

REPORT INFORMATION
  Report Type: Spontaneous
  Country: US (occurrence: US)
  Receive Date: 20220802
  Receipt Date: 20220808
  Transmission Date: 20221026
  Serious: Yes (Other)
  Sender: FDA-Public Use
  Company Number: US-PFIZER INC-PV202200032581

PATIENT
  Age: 13 Month
  Sex: Male

DRUGS (4)
  1. VINCRISTINE SULFATE [Suspect]
     Active Substance: VINCRISTINE SULFATE
     Indication: Ganglioglioma
     Dosage: 1.5 MG/M2, CYCLIC
  2. VINCRISTINE SULFATE [Suspect]
     Active Substance: VINCRISTINE SULFATE
     Indication: Brain neoplasm
  3. CARBOPLATIN [Suspect]
     Active Substance: CARBOPLATIN
     Indication: Ganglioglioma
     Dosage: 175 MG/M2, CYCLIC
  4. CARBOPLATIN [Suspect]
     Active Substance: CARBOPLATIN
     Indication: Brain neoplasm

REACTIONS (3)
  - Ascites [Recovered/Resolved]
  - Diarrhoea [Recovered/Resolved]
  - Infantile vomiting [Recovered/Resolved]
